FAERS Safety Report 12739814 (Version 1)
Quarter: 2016Q3

REPORT INFORMATION
  Report Type: Spontaneous
  Country: CH (occurrence: CH)
  Receive Date: 20160913
  Receipt Date: 20160913
  Transmission Date: 20161109
  Serious: Yes (Other)
  Sender: FDA-Public Use
  Company Number: CH-JNJFOC-20160907402

PATIENT
  Age: 67 Year
  Sex: Female

DRUGS (8)
  1. FLURAZEPAM [Concomitant]
     Active Substance: FLURAZEPAM\FLURAZEPAM HYDROCHLORIDE
     Route: 048
  2. LEVOTHYROXINE. [Concomitant]
     Active Substance: LEVOTHYROXINE
     Route: 065
  3. LITHIOFOR [Concomitant]
     Active Substance: LITHIUM SULFATE
     Route: 048
  4. RISPERDAL CONSTA [Suspect]
     Active Substance: RISPERIDONE
     Indication: SCHIZOAFFECTIVE DISORDER
     Route: 065
     Dates: end: 20160715
  5. RISPERDAL [Suspect]
     Active Substance: RISPERIDONE
     Indication: SCHIZOAFFECTIVE DISORDER
     Dosage: WITH 1 MG TWICE A DAY IN RESERVE IN CASE OF DECOMPENSATION.
     Route: 048
     Dates: start: 20160729
  6. RISPERDAL [Suspect]
     Active Substance: RISPERIDONE
     Indication: SCHIZOAFFECTIVE DISORDER
     Route: 048
  7. RISPERDAL [Suspect]
     Active Substance: RISPERIDONE
     Indication: SCHIZOAFFECTIVE DISORDER
     Dosage: 1 MG TWICE A DAY IN RESERVE IN CASE OF DECOMPENSATION.
     Route: 048
  8. RISPERDAL [Suspect]
     Active Substance: RISPERIDONE
     Indication: SCHIZOAFFECTIVE DISORDER
     Route: 048

REACTIONS (6)
  - Tremor [Unknown]
  - Drug prescribing error [Unknown]
  - Dyskinesia [Unknown]
  - Sedation [Unknown]
  - Psychomotor retardation [Unknown]
  - Off label use [Unknown]

NARRATIVE: CASE EVENT DATE: 20160729
